FAERS Safety Report 7001763-1 (Version None)
Quarter: 2010Q3

REPORT INFORMATION
  Report Type: 
  Country: None (occurrence: None)
  Receive Date: 20100920
  Receipt Date: 20100517
  Transmission Date: 20110219
  Serious: Yes (Hospitalization)
  Sender: FDA-Public Use
  Company Number: US-ASTRAZENECA-2009SE17245

PATIENT
  Age: 10148 Day
  Sex: Female

DRUGS (16)
  1. SEROQUEL [Suspect]
     Indication: INSOMNIA
     Route: 048
     Dates: start: 20050906
  2. KLONOPIN PLUS [Concomitant]
     Dosage: 1 MG TO 3 MG IN A DAY
     Dates: start: 20050906
  3. ATIVAN [Concomitant]
     Dates: start: 20050906
  4. XANAX [Concomitant]
     Dates: start: 20050906
  5. ZOLOFT [Concomitant]
     Dates: start: 20050906
  6. EFFEXOR [Concomitant]
     Dates: start: 20050906
  7. LEXAPRO [Concomitant]
     Dates: start: 20050906
  8. BENZODIAZEPINES [Concomitant]
     Dates: start: 20050906
  9. PAXIL [Concomitant]
     Dosage: 25 CR TWICE A DAY
     Dates: start: 20050906
  10. NEURONTIN [Concomitant]
     Dates: start: 20050906
  11. LOVENOX [Concomitant]
     Dates: start: 20070529
  12. GLIMEPIRIDE [Concomitant]
     Dates: start: 20070529
  13. OXYCONTIN [Concomitant]
     Dates: start: 20070529
  14. PROTONIX [Concomitant]
     Dates: start: 20070529
  15. AVANDIA [Concomitant]
     Dates: start: 20070529
  16. COUMADIN [Concomitant]
     Dates: start: 20070529

REACTIONS (3)
  - DIABETES MELLITUS [None]
  - DIABETIC HYPEROSMOLAR COMA [None]
  - TYPE 2 DIABETES MELLITUS [None]
